FAERS Safety Report 10306139 (Version 1)
Quarter: 2014Q3

REPORT INFORMATION
  Report Type: Report from Study
  Country: DE (occurrence: DE)
  Receive Date: 20140715
  Receipt Date: 20140715
  Transmission Date: 20150326
  Serious: Yes (Hospitalization)
  Sender: FDA-Public Use
  Company Number: DE-BRISTOL-MYERS SQUIBB COMPANY-21185582

PATIENT
  Age: 55 Year
  Sex: Male
  Weight: 83 kg

DRUGS (2)
  1. MYFORTIC [Suspect]
     Active Substance: MYCOPHENOLATE SODIUM
     Indication: RENAL TRANSPLANT
  2. BELATACEPT [Suspect]
     Active Substance: BELATACEPT
     Indication: IMMUNOSUPPRESSION

REACTIONS (2)
  - Gastroenteritis [Recovered/Resolved]
  - Gout [Recovered/Resolved]

NARRATIVE: CASE EVENT DATE: 20140619
